FAERS Safety Report 4803436-X (Version None)
Quarter: 2005Q4

REPORT INFORMATION
  Report Type: 
  Country: None (occurrence: None)
  Receive Date: 20051013
  Receipt Date: 20050926
  Transmission Date: 20060501
  Serious: Yes (Hospitalization)
  Sender: FDA-Public Use
  Company Number: USA0508106406

PATIENT
  Age: 74 Year
  Sex: Female

DRUGS (2)
  1. FORTEO [Suspect]
     Indication: OSTEOPOROSIS
     Dosage: 20 UG EVERY OTHER DAY
  2. VIACTIV [Concomitant]

REACTIONS (9)
  - ASTHENIA [None]
  - DEHYDRATION [None]
  - DIZZINESS [None]
  - DYSSTASIA [None]
  - INSOMNIA [None]
  - NAUSEA [None]
  - PHARMACEUTICAL PRODUCT COMPLAINT [None]
  - URTICARIA [None]
  - WEIGHT GAIN POOR [None]
